FAERS Safety Report 5787870-X (Version None)
Quarter: 2008Q2

REPORT INFORMATION
  Report Type: 
  Country: None (occurrence: None)
  Receive Date: 20080624
  Receipt Date: 20080624
  Transmission Date: 20081010
  Serious: No
  Sender: FDA-Public Use
  Company Number: None

PATIENT
  Age: 29 Year
  Sex: Male
  Weight: 90.7194 kg

DRUGS (1)
  1. PROPECIA [Suspect]
     Indication: ALOPECIA
     Dosage: 1 PILL 1 A DAY PO
     Route: 048
     Dates: start: 20030408, end: 20080513

REACTIONS (2)
  - ERECTILE DYSFUNCTION [None]
  - PENILE SIZE REDUCED [None]
